FAERS Safety Report 5050185-1 (Version None)
Quarter: 2006Q2

REPORT INFORMATION
  Report Type: 
  Country: None (occurrence: None)
  Receive Date: 20060614
  Receipt Date: 20060410
  Transmission Date: 20061013
  Serious: Yes (Other)
  Sender: FDA-Public Use
  Company Number: 444477

PATIENT
  Age: 84 Year
  Sex: Female

DRUGS (1)
  1. BONIVA [Suspect]
     Indication: OSTEOPOROSIS
     Dosage: 150 MG   1 PER MONTH   ORAL
     Route: 048
     Dates: start: 20060401

REACTIONS (3)
  - CYSTITIS [None]
  - METRORRHAGIA [None]
  - VISION BLURRED [None]
